FAERS Safety Report 5627066-5 (Version None)
Quarter: 2008Q1

REPORT INFORMATION
  Report Type: 
  Country: None (occurrence: None)
  Receive Date: 20080116
  Receipt Date: 20061220
  Transmission Date: 20080703
  Serious: Yes (Hospitalization)
  Sender: FDA-Public Use
  Company Number: BDI-008966

PATIENT
  Age: 42 Year
  Sex: Male

DRUGS (9)
  1. PROHANCE [Suspect]
     Indication: NUCLEAR MAGNETIC RESONANCE IMAGING BRAIN
     Dosage: 15 ML ONCE IV
     Route: 042
     Dates: start: 20061218, end: 20061218
  2. PRAVACHOL [Concomitant]
  3. CYMBALTA [Concomitant]
  4. TOPAMAX [Concomitant]
  5. GLUCOPHAGE [Concomitant]
  6. NEXIUM [Concomitant]
  7. GLUCOTROL [Concomitant]
  8. ZOCOR [Concomitant]
  9. PROTONIX [Concomitant]

REACTIONS (3)
  - ANAPHYLACTOID REACTION [None]
  - CHEST PAIN [None]
  - CONVULSION [None]
